FAERS Safety Report 6100614-7 (Version None)
Quarter: 2009Q1

REPORT INFORMATION
  Report Type: 
  Country: None (occurrence: None)
  Receive Date: 20090227
  Receipt Date: 20090227
  Transmission Date: 20090719
  Serious: No
  Sender: FDA-Public Use
  Company Number: None

PATIENT
  Age: 48 Year
  Sex: Female
  Weight: 97.5234 kg

DRUGS (2)
  1. REGLAN [Suspect]
     Indication: IRRITABLE BOWEL SYNDROME
     Dosage: 1 A DAY
     Dates: start: 20080501, end: 20090201
  2. REGLAN [Concomitant]

REACTIONS (3)
  - BLOOD BLISTER [None]
  - DISEASE RECURRENCE [None]
  - HERPES VIRUS INFECTION [None]
